FAERS Safety Report 7164259-2 (Version None)
Quarter: 2010Q4

REPORT INFORMATION
  Report Type: 
  Country: None (occurrence: None)
  Receive Date: 20101215
  Receipt Date: 20101202
  Transmission Date: 20110411
  Serious: Yes (Other)
  Sender: FDA-Public Use
  Company Number: ES-WATSON-2010-15576

PATIENT
  Sex: Male

DRUGS (3)
  1. TRELSTAR [Suspect]
     Indication: PROSTATE CANCER
     Dosage: 11.25 MG, ONCE EVERY 4 MONTHS IN 1 YEAR
     Route: 030
     Dates: start: 20091119
  2. DIAMICRON [Concomitant]
     Indication: PRODUCT USED FOR UNKNOWN INDICATION
     Dosage: 80 MG, BID
     Route: 065
     Dates: start: 19690101
  3. METFORMIN HCL [Concomitant]
     Indication: PRODUCT USED FOR UNKNOWN INDICATION
     Dosage: 850 MG, DAILY
     Route: 065
     Dates: start: 19690101

REACTIONS (1)
  - LACUNAR INFARCTION [None]
